FAERS Safety Report 25776275 (Version 1)
Quarter: 2025Q3

REPORT INFORMATION
  Report Type: Spontaneous
  Country: US (occurrence: US)
  Receive Date: 20250909
  Receipt Date: 20250909
  Transmission Date: 20251021
  Serious: No
  Sender: DOMPE FARMACEUTICI
  Company Number: US-FARMAPROD-202502-0516

PATIENT
  Sex: Male
  Weight: 96.16 kg

DRUGS (7)
  1. OXERVATE [Suspect]
     Active Substance: CENEGERMIN-BKBJ
     Indication: Neurotrophic keratopathy
     Route: 047
     Dates: start: 20250207
  2. OXERVATE [Suspect]
     Active Substance: CENEGERMIN-BKBJ
  3. ASPIRIN [Concomitant]
     Active Substance: ASPIRIN
  4. GABAPENTIN [Concomitant]
     Active Substance: GABAPENTIN
  5. TAMSULOSIN HYDROCHLORIDE [Concomitant]
     Active Substance: TAMSULOSIN HYDROCHLORIDE
  6. OMEPRAZOLE [Concomitant]
     Active Substance: OMEPRAZOLE
  7. LOSARTAN POTASSIUM [Concomitant]
     Active Substance: LOSARTAN POTASSIUM

REACTIONS (9)
  - Eye irritation [Not Recovered/Not Resolved]
  - Overdose [Unknown]
  - Scab [Unknown]
  - Intentional product misuse [Unknown]
  - Eye pain [Recovering/Resolving]
  - Dry eye [Unknown]
  - Ocular discomfort [Unknown]
  - Therapy interrupted [Unknown]
  - Product storage error [Unknown]
